FAERS Safety Report 6444468-8 (Version None)
Quarter: 2009Q4

REPORT INFORMATION
  Report Type: 
  Country: None (occurrence: None)
  Receive Date: 20091117
  Receipt Date: 20091117
  Transmission Date: 20100525
  Serious: Yes (Life-Threatening, Hospitalization)
  Sender: FDA-Public Use
  Company Number: None

PATIENT
  Sex: Female
  Weight: 92.9874 kg

DRUGS (3)
  1. YAZ [Suspect]
     Indication: CONTRACEPTION
     Dosage: DAILY
  2. YAZ [Suspect]
     Indication: MENORRHAGIA
     Dosage: DAILY
  3. YAZ [Suspect]
     Indication: MUSCLE SPASMS
     Dosage: DAILY

REACTIONS (1)
  - PULMONARY EMBOLISM [None]
